FAERS Safety Report 6345072-2 (Version None)
Quarter: 2009Q3

REPORT INFORMATION
  Report Type: 
  Country: None (occurrence: None)
  Receive Date: 20090909
  Receipt Date: 20090826
  Transmission Date: 20100115
  Serious: Yes (Death)
  Sender: FDA-Public Use
  Company Number: GB-RANBAXY-2009RR-26513

PATIENT
  Age: 54 Year
  Sex: Male

DRUGS (5)
  1. FELODIPINE [Suspect]
     Indication: SUICIDE ATTEMPT
     Dosage: 250 MG, UNK
     Route: 048
  2. BENDROFLUMETHIAZIDE [Concomitant]
     Dosage: 2.5 MG, QD
  3. FLUOXETINE [Concomitant]
     Dosage: 20 MG, UNK
  4. CARBAMAZEPINE [Concomitant]
     Dosage: 1 G, BID
  5. LAMOTRIGINE [Concomitant]
     Dosage: 100 MG, BID

REACTIONS (3)
  - DEATH [None]
  - OVERDOSE [None]
  - SUICIDE ATTEMPT [None]
